FAERS Safety Report 5708917-2 (Version None)
Quarter: 2008Q2

REPORT INFORMATION
  Report Type: 
  Country: None (occurrence: None)
  Receive Date: 20080416
  Receipt Date: 20080402
  Transmission Date: 20081010
  Serious: Yes (Other)
  Sender: FDA-Public Use
  Company Number: GXKR2008US03420

PATIENT
  Age: 16 Year
  Sex: Male

DRUGS (9)
  1. CIPROFLOXACIN [Suspect]
     Indication: PERIRECTAL ABSCESS
     Dosage: 400 MG, BID, INTRAVENOUS
     Route: 042
  2. METRONIDAZOLE [Concomitant]
  3. METHYLPREDNISOLONE [Concomitant]
  4. MESALAMINE [Concomitant]
  5. AZATHIOPRINE [Concomitant]
  6. RANITIDINE [Concomitant]
  7. LANSOPRAZOLE [Concomitant]
  8. FERROUS SULPHATE (FERROUS SULPHATE) [Concomitant]
  9. INFLIXIMAB (INFLIXIMAB) [Concomitant]

REACTIONS (3)
  - BRADYCARDIA [None]
  - DISCOMFORT [None]
  - ELECTROCARDIOGRAM QT PROLONGED [None]
